FAERS Safety Report 10385639 (Version 2)
Quarter: 2014Q3

REPORT INFORMATION
  Report Type: Spontaneous
  Country: US (occurrence: US)
  Receive Date: 20140814
  Receipt Date: 20140814
  Transmission Date: 20150326
  Serious: Yes (Hospitalization, Other)
  Sender: FDA-Public Use
  Company Number: US-009507513-2010SP004581

PATIENT
  Sex: Female
  Weight: 102.51 kg

DRUGS (3)
  1. NUVARING [Suspect]
     Active Substance: ETHINYL ESTRADIOL\ETONOGESTREL
     Indication: CONTRACEPTION
     Route: 067
     Dates: start: 2007, end: 20071022
  2. IMITREX [Concomitant]
     Active Substance: SUMATRIPTAN\SUMATRIPTAN SUCCINATE
     Indication: PRODUCT USED FOR UNKNOWN INDICATION
  3. NUVARING [Suspect]
     Active Substance: ETHINYL ESTRADIOL\ETONOGESTREL
     Indication: MENSTRUAL CYCLE MANAGEMENT
     Dates: end: 2008

REACTIONS (10)
  - Umbilical hernia [Unknown]
  - Vertigo [Unknown]
  - Headache [Unknown]
  - Pulmonary embolism [Unknown]
  - Menstruation irregular [Unknown]
  - Deep vein thrombosis [Unknown]
  - Migraine [Unknown]
  - Weight increased [Unknown]
  - Pleurisy [Unknown]
  - Pharyngitis [Unknown]

NARRATIVE: CASE EVENT DATE: 200710
